FAERS Safety Report 14221806 (Version 2)
Quarter: 2017Q4

REPORT INFORMATION
  Report Type: Spontaneous
  Country: ES (occurrence: ES)
  Receive Date: 20171123
  Receipt Date: 20171201
  Transmission Date: 20180321
  Serious: Yes (Hospitalization, Other)
  Sender: FDA-Public Use
  Company Number: ES-VISTAPHARM, INC.-VER201711-001111

PATIENT
  Age: 55 Year
  Sex: Female

DRUGS (6)
  1. MORPHINE [Suspect]
     Active Substance: MORPHINE
  2. MORPHINE [Suspect]
     Active Substance: MORPHINE
     Dosage: INFUSION PUMP OF TYPE MEDTRONIC SYNCHROMED II WITH 40 ML RESERVOIR AND 0.14 ML CATHETER
     Route: 037
  3. MORPHINE [Suspect]
     Active Substance: MORPHINE
  4. MORPHINE [Suspect]
     Active Substance: MORPHINE
  5. MORPHINE [Suspect]
     Active Substance: MORPHINE
  6. MORPHINE [Suspect]
     Active Substance: MORPHINE
     Indication: POST LAMINECTOMY SYNDROME
     Route: 048

REACTIONS (9)
  - Deafness bilateral [Recovered/Resolved]
  - Deafness neurosensory [Recovered/Resolved]
  - Vertigo [Recovering/Resolving]
  - Respiratory depression [Recovering/Resolving]
  - Respiratory acidosis [Unknown]
  - Loss of consciousness [Unknown]
  - Oxygen saturation decreased [Unknown]
  - Treatment failure [Unknown]
  - Toxicity to various agents [Unknown]
